FAERS Safety Report 8916343 (Version 6)
Quarter: 2014Q3

REPORT INFORMATION
  Report Type: Spontaneous
  Country: US (occurrence: US)
  Receive Date: 20121120
  Receipt Date: 20140814
  Transmission Date: 20150326
  Serious: Yes (Hospitalization, Other)
  Sender: FDA-Public Use
  Company Number: US-009507513-1211USA008011

PATIENT
  Sex: Female
  Weight: 57.6 kg

DRUGS (2)
  1. NUVARING [Suspect]
     Active Substance: ETHINYL ESTRADIOL\ETONOGESTREL
     Indication: CONTRACEPTION
     Dosage: UNK
     Route: 067
     Dates: start: 200405, end: 200411
  2. NUVARING [Suspect]
     Active Substance: ETHINYL ESTRADIOL\ETONOGESTREL
     Indication: MENSTRUATION IRREGULAR

REACTIONS (9)
  - Hiatus hernia [Unknown]
  - Infection [Unknown]
  - Haemorrhage [Unknown]
  - Stress [Unknown]
  - Arthritis [Unknown]
  - Peripheral venous disease [Unknown]
  - Constipation [Unknown]
  - Ovarian cyst [Unknown]
  - Pulmonary embolism [Recovered/Resolved]

NARRATIVE: CASE EVENT DATE: 200410
